FAERS Safety Report 9800974 (Version 2)
Quarter: 2014Q1

REPORT INFORMATION
  Report Type: Spontaneous
  Country: IT (occurrence: IT)
  Receive Date: 20140107
  Receipt Date: 20140226
  Transmission Date: 20141002
  Serious: Yes (Hospitalization)
  Sender: FDA-Public Use
  Company Number: IT-BRISTOL-MYERS SQUIBB COMPANY-19956416

PATIENT
  Age: 79 Year
  Sex: Female

DRUGS (9)
  1. COUMADIN TABS 5 MG [Suspect]
     Indication: ATRIAL FIBRILLATION
     Dates: start: 20130330, end: 20130425
  2. FUROSEMIDE [Concomitant]
  3. IRBESARTAN [Concomitant]
  4. VALPROATE SODIUM [Concomitant]
  5. ALLOPURINOL [Concomitant]
  6. CITALOPRAM [Concomitant]
  7. FLUCONAZOLE [Concomitant]
  8. PARIET [Concomitant]
  9. DIBASE [Concomitant]

REACTIONS (2)
  - Asthenia [Recovering/Resolving]
  - International normalised ratio increased [Recovering/Resolving]
